FAERS Safety Report 10470579 (Version 1)
Quarter: 2014Q3

REPORT INFORMATION
  Report Type: Spontaneous
  Country: PL (occurrence: PL)
  Receive Date: 20140923
  Receipt Date: 20140923
  Transmission Date: 20150326
  Serious: Yes (Hospitalization, Other)
  Sender: FDA-Public Use
  Company Number: PL-ABBVIE-14P-129-1284130-00

PATIENT
  Age: 34 Year
  Sex: Female

DRUGS (14)
  1. ACETYLIC ACID [Concomitant]
     Indication: OVULATION INDUCTION
  2. PREDNISONE. [Concomitant]
     Active Substance: PREDNISONE
     Indication: OVULATION INDUCTION
  3. ALBUMIN [Concomitant]
     Active Substance: ALBUMIN (HUMAN)
     Indication: PRODUCT USED FOR UNKNOWN INDICATION
  4. LEVOTHYROXINE [Suspect]
     Active Substance: LEVOTHYROXINE
     Indication: HYPOTHYROIDISM
  5. ENOXAPARIN [Concomitant]
     Active Substance: ENOXAPARIN
     Indication: OVULATION INDUCTION
  6. RECOMBINANT HUMAN CHORIONIC GONADOTROPIN [Concomitant]
     Indication: OVULATION INDUCTION
  7. LEVOTHYROXINE [Suspect]
     Active Substance: LEVOTHYROXINE
  8. RECOMBINANT FOLLICLE STIMULATION HORMONE [Concomitant]
     Indication: OVULATION INDUCTION
  9. CABERGOLINE. [Concomitant]
     Active Substance: CABERGOLINE
     Indication: PRODUCT USED FOR UNKNOWN INDICATION
  10. PROGESTERONE. [Concomitant]
     Active Substance: PROGESTERONE
     Indication: SUPPLEMENTATION THERAPY
  11. LEVOTHYROXINE [Suspect]
     Active Substance: LEVOTHYROXINE
  12. FOLIC ACID. [Concomitant]
     Active Substance: FOLIC ACID
     Indication: OVULATION INDUCTION
  13. HYDROXYETHYLSTARCH [Concomitant]
     Indication: PRODUCT USED FOR UNKNOWN INDICATION
  14. LEVOTHYROXINE [Suspect]
     Active Substance: LEVOTHYROXINE

REACTIONS (2)
  - Thyroid disorder [Recovered/Resolved]
  - Ovarian hyperstimulation syndrome [Recovered/Resolved]
